FAERS Safety Report 11340614 (Version 1)
Quarter: 2015Q3

REPORT INFORMATION
  Report Type: Spontaneous
  Country: US (occurrence: None)
  Receive Date: 20150629
  Receipt Date: 20150629
  Transmission Date: 20151125
  Serious: No
  Sender: FDA-Public Use
  Company Number: A-US2014-110292

PATIENT
  Age: 66 Year
  Sex: Female

DRUGS (5)
  1. WARFARIN SODIUM. [Concomitant]
     Active Substance: WARFARIN SODIUM
  2. AMLODIPINE [Concomitant]
     Active Substance: AMLODIPINE BESYLATE
  3. FUROSEMIDE. [Concomitant]
     Active Substance: FUROSEMIDE
  4. DETROL (TOLTERODINE L-TARTRATE) [Concomitant]
  5. OPSUMIT [Suspect]
     Active Substance: MACITENTAN
     Indication: PULMONARY HYPERTENSION
     Route: 048
     Dates: start: 20141204

REACTIONS (3)
  - Bone pain [None]
  - Muscle spasms [None]
  - Fatigue [None]

NARRATIVE: CASE EVENT DATE: 20141207
